FAERS Safety Report 17837220 (Version 2)
Quarter: 2020Q2

REPORT INFORMATION
  Report Type: Spontaneous
  Country: IT (occurrence: IT)
  Receive Date: 20200528
  Receipt Date: 20200615
  Transmission Date: 20200714
  Serious: Yes (Life-Threatening, Hospitalization, Other)
  Sender: FDA-Public Use
  Company Number: IT-MYLANLABS-2020M1052493

PATIENT
  Age: 93 Year
  Sex: Female

DRUGS (7)
  1. METHYLPREDNISOLONE. [Suspect]
     Active Substance: METHYLPREDNISOLONE
     Indication: CHRONIC OBSTRUCTIVE PULMONARY DISEASE
  2. BUDESONIDE. [Suspect]
     Active Substance: BUDESONIDE
     Indication: CHRONIC OBSTRUCTIVE PULMONARY DISEASE
  3. METHYLPREDNISOLONE. [Suspect]
     Active Substance: METHYLPREDNISOLONE
     Indication: PERIPHERAL VENOUS DISEASE
     Dosage: UNK
  4. FONDAPARINUX [Suspect]
     Active Substance: FONDAPARINUX
     Indication: VENOUS THROMBOSIS
     Dosage: 7.5 MILLIGRAM, QD
     Route: 065
  5. FONDAPARINUX [Suspect]
     Active Substance: FONDAPARINUX
     Indication: VENOUS OCCLUSION
     Dosage: 5 MILLIGRAM, QD
  6. BUDESONIDE. [Suspect]
     Active Substance: BUDESONIDE
     Indication: PERIPHERAL VENOUS DISEASE
     Dosage: UNK
     Route: 055
  7. BUDESONIDE. [Suspect]
     Active Substance: BUDESONIDE
     Indication: UPPER RESPIRATORY TRACT INFECTION

REACTIONS (6)
  - Product use issue [Unknown]
  - Skin atrophy [Recovered/Resolved]
  - Subcutaneous haematoma [Recovered/Resolved]
  - Skin ulcer [Recovered/Resolved]
  - Skin necrosis [Recovered/Resolved]
  - Compartment syndrome [Recovered/Resolved]
